FAERS Safety Report 13498918 (Version 1)
Quarter: 2017Q2

REPORT INFORMATION
  Report Type: Spontaneous
  Country: US (occurrence: US)
  Receive Date: 20170430
  Receipt Date: 20170430
  Transmission Date: 20170830
  Serious: Yes (Disabling)
  Sender: FDA-Public Use
  Company Number: None

PATIENT
  Age: 49 Year
  Sex: Female
  Weight: 81 kg

DRUGS (6)
  1. GABAPENTIN. [Concomitant]
     Active Substance: GABAPENTIN
  2. MULTI-VITAMINS [Concomitant]
  3. D VITAMINS [Concomitant]
  4. TECFIDERA [Suspect]
     Active Substance: DIMETHYL FUMARATE
     Indication: MULTIPLE SCLEROSIS
     Dosage: ?          QUANTITY:46 CAPSULE(S);?
     Route: 048
     Dates: start: 20170407, end: 20170428
  5. BACLOFEN. [Concomitant]
     Active Substance: BACLOFEN
  6. TRAMODOL [Concomitant]
     Active Substance: TRAMADOL

REACTIONS (4)
  - Abdominal pain upper [None]
  - Diarrhoea haemorrhagic [None]
  - Dehydration [None]
  - Eating disorder [None]

NARRATIVE: CASE EVENT DATE: 20170424
